FAERS Safety Report 9460107 (Version 1)
Quarter: 2013Q3

REPORT INFORMATION
  Report Type: Spontaneous
  Country: IN (occurrence: IN)
  Receive Date: 20130815
  Receipt Date: 20130815
  Transmission Date: 20140515
  Serious: Yes (Other)
  Sender: FDA-Public Use
  Company Number: PHHY2013IN085254

PATIENT
  Age: 58 Year
  Sex: Female

DRUGS (1)
  1. DOXORUBICIN [Suspect]
     Indication: BREAST CANCER

REACTIONS (10)
  - Left ventricular hypertrophy [Unknown]
  - Pulmonary arterial hypertension [Unknown]
  - Congestive cardiomyopathy [Unknown]
  - Fatigue [Unknown]
  - Dyspnoea [Unknown]
  - Oedema peripheral [Unknown]
  - Venous pressure jugular increased [Unknown]
  - Crepitations [Unknown]
  - Asthenia [Unknown]
  - Sinus tachycardia [Unknown]
